FAERS Safety Report 8003602-9 (Version None)
Quarter: 2011Q4

REPORT INFORMATION
  Report Type: 
  Country: None (occurrence: None)
  Receive Date: 20111222
  Receipt Date: 20111220
  Transmission Date: 20120403
  Serious: Yes (Other)
  Sender: FDA-Public Use
  Company Number: JP-PFIZER INC-2011301587

PATIENT
  Age: 38 Year
  Sex: Female

DRUGS (2)
  1. LOXOMARIN [Concomitant]
     Dosage: UNK
     Route: 048
     Dates: start: 20111130, end: 20111130
  2. ZITHROMAX [Suspect]
     Dosage: 2 G, SINGLE
     Route: 048
     Dates: start: 20111130, end: 20111130

REACTIONS (3)
  - HAEMATOCHEZIA [None]
  - DIARRHOEA [None]
  - FAECES PALE [None]
